FAERS Safety Report 4263641-0 (Version None)
Quarter: 2004Q1

REPORT INFORMATION
  Report Type: 
  Country: None (occurrence: None)
  Receive Date: 20040102
  Receipt Date: 20031222
  Transmission Date: 20041129
  Serious: Yes (Other)
  Sender: FDA-Public Use
  Company Number: FR-JNJFOC-20031104788

PATIENT
  Age: 65 Year
  Sex: Male

DRUGS (7)
  1. CISAPRIDE (CISAPRIDE) TABLETS [Suspect]
     Indication: IMPAIRED GASTRIC EMPTYING
     Dosage: SEE IMAGE
     Route: 048
     Dates: start: 20030806, end: 20030812
  2. CISAPRIDE (CISAPRIDE) TABLETS [Suspect]
     Indication: IMPAIRED GASTRIC EMPTYING
     Dosage: SEE IMAGE
     Route: 048
     Dates: start: 20030813, end: 20030902
  3. CISAPRIDE (CISAPRIDE) TABLETS [Suspect]
     Indication: IMPAIRED GASTRIC EMPTYING
     Dosage: SEE IMAGE
     Route: 048
     Dates: start: 20030903, end: 20030909
  4. FONZYLANE (BUFLOMEDIL HYDROCHLORIDE) [Concomitant]
  5. VASTAREL (TRIMETAZIDINE HYDROCHLORIDE) [Concomitant]
  6. FENOFIBRATE [Concomitant]
  7. KLIPAL (CO-DAFALGAN) [Concomitant]

REACTIONS (7)
  - ABDOMINAL DISTENSION [None]
  - BOWEL SOUNDS ABNORMAL [None]
  - CONSTIPATION [None]
  - DIARRHOEA [None]
  - ERUCTATION [None]
  - FLATULENCE [None]
  - HEPATIC LESION [None]
